FAERS Safety Report 16068300 (Version 1)
Quarter: 2019Q1

REPORT INFORMATION
  Report Type: Spontaneous
  Country: US (occurrence: US)
  Receive Date: 20190313
  Receipt Date: 20190313
  Transmission Date: 20190418
  Serious: Yes (Hospitalization, Disabling, Other)
  Sender: FDA-Public Use
  Company Number: US-BAYER-2019-044757

PATIENT
  Age: 61 Year
  Sex: Female
  Weight: 76.2 kg

DRUGS (2)
  1. CIPRO [Suspect]
     Active Substance: CIPROFLOXACIN HYDROCHLORIDE
  2. LYRICA [Suspect]
     Active Substance: PREGABALIN

REACTIONS (8)
  - Diabetic ulcer [Unknown]
  - Drug ineffective [None]
  - Renal failure [Recovered/Resolved]
  - Diabetes mellitus inadequate control [None]
  - Gastrointestinal disorder [Not Recovered/Not Resolved]
  - Cellulitis [None]
  - Foot fracture [None]
  - Pain in extremity [Not Recovered/Not Resolved]

NARRATIVE: CASE EVENT DATE: 201802
